FAERS Safety Report 8391165-8 (Version None)
Quarter: 2012Q2

REPORT INFORMATION
  Report Type: 
  Country: None (occurrence: None)
  Receive Date: 20120529
  Receipt Date: 20120517
  Transmission Date: 20120825
  Serious: Yes (Life-Threatening, Other)
  Sender: FDA-Public Use
  Company Number: JP-ELI_LILLY_AND_COMPANY-JP201204003658

PATIENT
  Sex: Male
  Weight: 50 kg

DRUGS (12)
  1. FEROTYM [Concomitant]
     Dosage: 200 MG, QD
     Route: 048
     Dates: start: 20110929
  2. ZYPREXA [Suspect]
     Indication: BIPOLAR DISORDER
     Dosage: 2.5 MG, QD
     Route: 048
     Dates: start: 20110929, end: 20120404
  3. BESACOLIN [Concomitant]
     Dosage: 1.2 G, QD
     Route: 048
     Dates: start: 20110929
  4. VALPROATE SODIUM [Concomitant]
     Indication: BIPOLAR DISORDER
     Dosage: 800 MG, QD
     Route: 048
     Dates: start: 20110929, end: 20120404
  5. FLUNITRAZEPAM [Concomitant]
     Dosage: 2 MG, QD
     Route: 048
     Dates: start: 20110929
  6. UBTEC [Concomitant]
     Dosage: 1 DF, QD
     Route: 048
     Dates: start: 20110929
  7. TAMSULOSIN HYDROCHLORIDE [Concomitant]
     Dosage: 1 DF, QD
     Route: 048
     Dates: start: 20110929
  8. CEFAZOLIN SODIUM [Concomitant]
     Dosage: 6 DF, QD
     Route: 048
     Dates: start: 20110929
  9. ZOLPIDEM [Concomitant]
     Dosage: 10 MG, QD
     Route: 048
     Dates: start: 20110929
  10. MECOBALAMIN [Concomitant]
     Dosage: 600 MG, QD
     Route: 048
     Dates: start: 20110929
  11. GAMOFA [Concomitant]
     Dosage: 30 MG, QD
     Route: 048
     Dates: start: 20110929
  12. MAGNESIUM SULFATE [Concomitant]
     Dosage: 110 MG, TID
     Route: 048
     Dates: start: 20110929

REACTIONS (8)
  - RECTAL CANCER [None]
  - CARCINOEMBRYONIC ANTIGEN INCREASED [None]
  - URINARY RETENTION [None]
  - THIRST [None]
  - LEUKOPENIA [None]
  - ELECTROLYTE IMBALANCE [None]
  - POLYDIPSIA [None]
  - PLATELET COUNT DECREASED [None]
